FAERS Safety Report 6309762-X (Version None)
Quarter: 2009Q3

REPORT INFORMATION
  Report Type: 
  Country: None (occurrence: None)
  Receive Date: 20090814
  Receipt Date: 20090805
  Transmission Date: 20100115
  Serious: Yes (Hospitalization)
  Sender: FDA-Public Use
  Company Number: US-ASTRAZENECA-2009SE07069

PATIENT
  Age: 15432 Day
  Sex: Male
  Weight: 69.4 kg

DRUGS (9)
  1. NEXIUM [Suspect]
     Indication: CROHN'S DISEASE
  2. REMICADE [Suspect]
     Indication: CROHN'S DISEASE
     Dosage: EIGHT INFUSION
     Dates: start: 20010101
  3. REMICADE [Suspect]
     Route: 042
     Dates: start: 20020829, end: 20020829
  4. REMICADE [Suspect]
     Route: 042
     Dates: start: 20030822, end: 20030822
  5. IMODIUM [Suspect]
     Indication: CROHN'S DISEASE
  6. PEDIALYTE [Suspect]
     Indication: CROHN'S DISEASE
  7. QUESTRAN [Suspect]
     Indication: CROHN'S DISEASE
  8. XIFAXAN [Suspect]
     Indication: CROHN'S DISEASE
  9. CERTOLIZUMAB [Suspect]

REACTIONS (5)
  - ARTHRITIS [None]
  - DEHYDRATION [None]
  - DIARRHOEA [None]
  - INFUSION RELATED REACTION [None]
  - RENAL FAILURE ACUTE [None]
